FAERS Safety Report 7144781-5 (Version None)
Quarter: 2010Q4

REPORT INFORMATION
  Report Type: 
  Country: None (occurrence: None)
  Receive Date: 20101208
  Receipt Date: 20101129
  Transmission Date: 20110411
  Serious: Yes (Hospitalization, Other)
  Sender: FDA-Public Use
  Company Number: US-ELI_LILLY_AND_COMPANY-US201012000102

PATIENT
  Sex: Female

DRUGS (2)
  1. EVISTA [Suspect]
  2. LOVENOX [Concomitant]

REACTIONS (2)
  - PULMONARY EMBOLISM [None]
  - SURGERY [None]
